FAERS Safety Report 13669846 (Version 3)
Quarter: 2017Q4

REPORT INFORMATION
  Report Type: Spontaneous
  Country: ES (occurrence: ES)
  Receive Date: 20170620
  Receipt Date: 20171019
  Transmission Date: 20180320
  Serious: Yes (Other)
  Sender: FDA-Public Use
  Company Number: ES-AMGEN-ESPSP2017091193

PATIENT
  Age: 62 Year
  Sex: Female

DRUGS (6)
  1. OMEPRAZOL [Concomitant]
     Active Substance: OMEPRAZOLE
  2. PROLIA [Suspect]
     Active Substance: DENOSUMAB
     Indication: OSTEOPOROSIS
     Dosage: UNK
     Route: 065
     Dates: end: 20160517
  3. NIFEDIPINO [Concomitant]
     Indication: HYPERTENSION
  4. PARACETAMOL [Concomitant]
     Active Substance: ACETAMINOPHEN
  5. ETORICOXIB [Concomitant]
     Active Substance: ETORICOXIB
     Dosage: 50 MG, UNK
  6. VITAMINE D [Concomitant]
     Dosage: 800 IU, QD

REACTIONS (3)
  - Spinal fracture [Recovering/Resolving]
  - Hypercalcaemia [Recovering/Resolving]
  - Hypervitaminosis [Recovering/Resolving]

NARRATIVE: CASE EVENT DATE: 2017
